FAERS Safety Report 6644499-9 (Version None)
Quarter: 2010Q1

REPORT INFORMATION
  Report Type: 
  Country: None (occurrence: None)
  Receive Date: 20100322
  Receipt Date: 20100311
  Transmission Date: 20100710
  Serious: Yes (Other)
  Sender: FDA-Public Use
  Company Number: US-JNJFOC-20100207461

PATIENT
  Sex: Female
  Weight: 85.28 kg

DRUGS (15)
  1. REMICADE [Suspect]
     Indication: CROHN'S DISEASE
     Route: 042
  2. REMICADE [Suspect]
     Route: 042
  3. PROTONIX [Concomitant]
  4. WELLBUTRIN [Concomitant]
  5. ABILIFY [Concomitant]
  6. NEURONTIN [Concomitant]
  7. COLAZAL [Concomitant]
     Indication: CROHN'S DISEASE
  8. TRAZODONE HCL [Concomitant]
  9. FENTANYL [Concomitant]
  10. LUNESTA [Concomitant]
     Dosage: 3 MG, 1-2 TABLETS EVERY EVENING
  11. PROZAC [Concomitant]
  12. IRON [Concomitant]
  13. SOLU-CORTEF [Concomitant]
     Indication: PREMEDICATION
  14. PREDNISOLONE [Concomitant]
     Indication: PREMEDICATION
  15. DIPHENHYDRAMINE HYDROCHLORIDE [Concomitant]
     Indication: PREMEDICATION

REACTIONS (4)
  - CHEST DISCOMFORT [None]
  - HUMAN ANTICHIMERIC ANTIBODY POSITIVE [None]
  - INFUSION RELATED REACTION [None]
  - OXYGEN SATURATION DECREASED [None]
